FAERS Safety Report 8205135-3 (Version None)
Quarter: 2012Q1

REPORT INFORMATION
  Report Type: 
  Country: None (occurrence: None)
  Receive Date: 20120313
  Receipt Date: 20120312
  Transmission Date: 20120608
  Serious: Yes (Death, Hospitalization)
  Sender: FDA-Public Use
  Company Number: US-GLAXOSMITHKLINE-A0969445A

PATIENT
  Sex: Male
  Weight: 62 kg

DRUGS (5)
  1. ASPIRIN [Concomitant]
  2. WARFARIN SODIUM [Concomitant]
  3. FLOLAN [Suspect]
     Indication: PULMONARY ARTERIAL HYPERTENSION
     Dates: start: 20111222
  4. OXYGEN [Concomitant]
  5. REVATIO [Concomitant]

REACTIONS (1)
  - DEATH [None]
